FAERS Safety Report 14024019 (Version 1)
Quarter: 2017Q3

REPORT INFORMATION
  Report Type: Spontaneous
  Country: US (occurrence: US)
  Receive Date: 20170928
  Receipt Date: 20170928
  Transmission Date: 20171128
  Serious: Yes (Other)
  Sender: FDA-Public Use
  Company Number: US-SA-2016SA231897

PATIENT
  Sex: Female

DRUGS (1)
  1. AUBAGIO [Suspect]
     Active Substance: TERIFLUNOMIDE
     Indication: MULTIPLE SCLEROSIS
     Route: 048
     Dates: start: 2013, end: 20170127

REACTIONS (7)
  - Speech disorder [Unknown]
  - Toxicity to various agents [Unknown]
  - Functional gastrointestinal disorder [Unknown]
  - Motor dysfunction [Unknown]
  - Gait inability [Unknown]
  - Multiple sclerosis [Unknown]
  - Muscle spasms [Unknown]
